FAERS Safety Report 6056220-6 (Version None)
Quarter: 2009Q1

REPORT INFORMATION
  Report Type: 
  Country: None (occurrence: None)
  Receive Date: 20090123
  Receipt Date: 20090123
  Transmission Date: 20090719
  Serious: Yes (Other)
  Sender: FDA-Public Use
  Company Number: None

PATIENT
  Age: 46 Year
  Sex: Female
  Weight: 70.7611 kg

DRUGS (1)
  1. CHANTIX [Suspect]
     Indication: SMOKING CESSATION THERAPY
     Dosage: 1 XDAILY PO DAY 4 BEGIN 2X DAILY
     Route: 048
     Dates: start: 20090110, end: 20090114

REACTIONS (12)
  - ABNORMAL BEHAVIOUR [None]
  - AGGRESSION [None]
  - ANGER [None]
  - CRYING [None]
  - DEPRESSION [None]
  - INSOMNIA [None]
  - MANIA [None]
  - SCREAMING [None]
  - SUICIDAL IDEATION [None]
  - THINKING ABNORMAL [None]
  - THIRST [None]
  - VIOLENCE-RELATED SYMPTOM [None]
